FAERS Safety Report 5787658-X (Version None)
Quarter: 2008Q2

REPORT INFORMATION
  Report Type: 
  Country: None (occurrence: None)
  Receive Date: 20080623
  Receipt Date: 20080623
  Transmission Date: 20081010
  Serious: Yes (Other)
  Sender: FDA-Public Use
  Company Number: None

PATIENT
  Age: 61 Year
  Sex: Female
  Weight: 127.4608 kg

DRUGS (1)
  1. MELOXICAM [Suspect]
     Indication: ARTHRALGIA
     Dosage: 15NG DAILY PO
     Route: 048
     Dates: start: 20080430, end: 20080618

REACTIONS (10)
  - ANXIETY [None]
  - CONSTIPATION [None]
  - CRYING [None]
  - DEPRESSED MOOD [None]
  - FATIGUE [None]
  - INSOMNIA [None]
  - IRRITABILITY [None]
  - NERVOUSNESS [None]
  - PHARMACEUTICAL PRODUCT COMPLAINT [None]
  - SOMNOLENCE [None]
